FAERS Safety Report 6943502-6 (Version None)
Quarter: 2010Q3

REPORT INFORMATION
  Report Type: 
  Country: None (occurrence: None)
  Receive Date: 20100826
  Receipt Date: 20100820
  Transmission Date: 20110219
  Serious: Yes (Other)
  Sender: FDA-Public Use
  Company Number: HQWYE074829JAN03

PATIENT
  Sex: Female

DRUGS (2)
  1. PREMPRO [Suspect]
     Indication: HORMONE REPLACEMENT THERAPY
     Dosage: UNSPECIFIED
     Route: 048
     Dates: end: 20010101
  2. PREMARIN [Suspect]

REACTIONS (4)
  - ALOPECIA [None]
  - CORONARY ARTERY DISEASE [None]
  - MOOD ALTERED [None]
  - POSTMENOPAUSAL HAEMORRHAGE [None]
